FAERS Safety Report 20417759 (Version 1)
Quarter: 2022Q1

REPORT INFORMATION
  Report Type: Report from Study
  Country: US (occurrence: US)
  Receive Date: 20220202
  Receipt Date: 20220202
  Transmission Date: 20220424
  Serious: Yes (Other)
  Sender: FDA-Public Use
  Company Number: US-TAKEDA-2022TUS006236

PATIENT
  Sex: Female

DRUGS (1)
  1. PENTASA [Suspect]
     Active Substance: MESALAMINE
     Indication: Product used for unknown indication
     Dosage: 1000 MILLIGRAM, BID
     Route: 048

REACTIONS (3)
  - Crohn^s disease [Recovering/Resolving]
  - Mental disorder [Recovering/Resolving]
  - Inappropriate schedule of product administration [Recovering/Resolving]
